FAERS Safety Report 24205380 (Version 1)
Quarter: 2024Q3

REPORT INFORMATION
  Report Type: Spontaneous
  Country: US (occurrence: US)
  Receive Date: 20240813
  Receipt Date: 20240813
  Transmission Date: 20241017
  Serious: Yes (Other)
  Sender: PFIZER
  Company Number: US-PFIZER INC-202400233044

PATIENT
  Age: 85 Year
  Sex: Female

DRUGS (2)
  1. IBRANCE [Suspect]
     Active Substance: PALBOCICLIB
     Dosage: UNK
     Dates: end: 20220526
  2. LETROZOLE [Concomitant]
     Active Substance: LETROZOLE
     Dosage: Q DAY (ONCE A DAY)

REACTIONS (5)
  - Respiratory distress [Unknown]
  - Palpitations [Unknown]
  - Presyncope [Unknown]
  - Physical deconditioning [Unknown]
  - Fatigue [Unknown]

NARRATIVE: CASE EVENT DATE: 20220512
